FAERS Safety Report 6126429-1 (Version None)
Quarter: 2009Q1

REPORT INFORMATION
  Report Type: 
  Country: None (occurrence: None)
  Receive Date: 20090320
  Receipt Date: 20090312
  Transmission Date: 20090719
  Serious: Yes (Hospitalization, Other)
  Sender: FDA-Public Use
  Company Number: US-ABBOTT-09P-163-0562496-00

PATIENT
  Sex: Female
  Weight: 53.572 kg

DRUGS (11)
  1. HUMIRA [Suspect]
     Indication: RHEUMATOID ARTHRITIS
     Route: 058
     Dates: start: 20080901
  2. URELLE [Suspect]
     Indication: URINARY TRACT INFECTION
     Dates: start: 20081001
  3. METHOTREXATE [Suspect]
     Indication: RHEUMATOID ARTHRITIS
  4. LEVOTHYROXINE [Suspect]
     Indication: HYPOTHYROIDISM
  5. ANTIBIOTICS [Suspect]
     Indication: HYSTERECTOMY
     Route: 042
     Dates: start: 20081001, end: 20081001
  6. AMBIEN [Suspect]
     Indication: ABNORMAL DREAMS
     Dates: start: 20081001
  7. FLEXERIL [Concomitant]
     Indication: FIBROMYALGIA
  8. LORAZEPAM [Concomitant]
     Indication: ANXIETY
  9. FOLIC ACID [Concomitant]
     Indication: RHEUMATOID ARTHRITIS
  10. ESTRODIAL [Concomitant]
     Indication: HORMONE REPLACEMENT THERAPY
  11. BENADRYL [Concomitant]
     Indication: PRURITUS

REACTIONS (18)
  - ABNORMAL DREAMS [None]
  - AMNESIA [None]
  - ANXIETY [None]
  - BLADDER PERFORATION [None]
  - FEELING COLD [None]
  - FUNGAL INFECTION [None]
  - HEART RATE INCREASED [None]
  - HYPERSOMNIA [None]
  - OVARIAN CYST [None]
  - OVULATION PAIN [None]
  - PSYCHIATRIC SYMPTOM [None]
  - SCAR [None]
  - STAPHYLOCOCCAL INFECTION [None]
  - THYROID FUNCTION TEST ABNORMAL [None]
  - TREMOR [None]
  - URINARY INCONTINENCE [None]
  - URINARY TRACT INFECTION [None]
  - VAGINAL FISTULA [None]
